FAERS Safety Report 8932040 (Version 2)
Quarter: 2013Q1

REPORT INFORMATION
  Report Type: Report from Study
  Country: US (occurrence: US)
  Receive Date: 20121128
  Receipt Date: 20130116
  Transmission Date: 20140127
  Serious: Yes (Death)
  Sender: FDA-Public Use
  Company Number: US-ROCHE-1158201

PATIENT
  Sex: Female

DRUGS (3)
  1. OXALIPLATIN [Suspect]
     Indication: PANCREATIC CARCINOMA
     Route: 065
  2. 5-FU [Suspect]
     Indication: PANCREATIC CARCINOMA
     Route: 065
  3. 5-FU [Suspect]
     Route: 065

REACTIONS (1)
  - Sepsis [Fatal]
